FAERS Safety Report 6605085-X (Version None)
Quarter: 2010Q1

REPORT INFORMATION
  Report Type: 
  Country: None (occurrence: None)
  Receive Date: 20100226
  Receipt Date: 20100216
  Transmission Date: 20100710
  Serious: Yes (Disabling)
  Sender: FDA-Public Use
  Company Number: MT-MERCK-1002USA02413

PATIENT
  Age: 56 Year
  Sex: Male
  Weight: 88 kg

DRUGS (1)
  1. ZOCOR [Suspect]
     Indication: HYPERLIPIDAEMIA
     Route: 048
     Dates: start: 20090814, end: 20091218

REACTIONS (2)
  - HYPOAESTHESIA [None]
  - MYOPATHY [None]
